FAERS Safety Report 4292022-9 (Version None)
Quarter: 2004Q1

REPORT INFORMATION
  Report Type: 
  Country: None (occurrence: None)
  Receive Date: 20040126
  Receipt Date: 20030909
  Transmission Date: 20041129
  Serious: No
  Sender: FDA-Public Use
  Company Number: USA030946745

PATIENT
  Age: 52 Year
  Sex: Female

DRUGS (4)
  1. FORTEO [Suspect]
     Indication: OSTEOPOROSIS
     Dates: start: 20030902
  2. DESYREL [Concomitant]
  3. PREVACID [Concomitant]
  4. PREDNISONE [Concomitant]

REACTIONS (2)
  - CONSTIPATION [None]
  - FATIGUE [None]
